FAERS Safety Report 10226655 (Version 1)
Quarter: 2014Q2

REPORT INFORMATION
  Report Type: Spontaneous
  Country: MX (occurrence: MX)
  Receive Date: 20140609
  Receipt Date: 20140609
  Transmission Date: 20141212
  Serious: Yes (Other)
  Sender: FDA-Public Use
  Company Number: PHHY2014MX070360

PATIENT
  Age: 64 Year
  Sex: Female

DRUGS (4)
  1. CO-DIOVAN [Suspect]
     Indication: HYPERTENSION
     Dosage: 0.5 DF (12.5/160MG), BID (HALF A TABLET IN THE MORINING AND HALF AT NIGHT)
     Route: 048
  2. MINIPRESS [Concomitant]
     Dosage: 4 MG, BID (IN THE MORNING AND AT NIGHT)
     Dates: start: 2004
  3. BICONCOR [Concomitant]
     Dosage: 0.5 UKN, QD (AT NIGHT)
     Dates: start: 2009
  4. AMLODIPINE [Concomitant]
     Dosage: 5 MG, BID (IN THE MORNING AND AT NIGHT)
     Dates: start: 2004

REACTIONS (7)
  - Glaucoma [Not Recovered/Not Resolved]
  - Hypoaesthesia [Not Recovered/Not Resolved]
  - Varicose vein [Not Recovered/Not Resolved]
  - Hiatus hernia [Not Recovered/Not Resolved]
  - Gastritis [Not Recovered/Not Resolved]
  - Platelet count decreased [Not Recovered/Not Resolved]
  - Wrong technique in drug usage process [Not Recovered/Not Resolved]
